FAERS Safety Report 23909890 (Version 1)
Quarter: 2024Q2

REPORT INFORMATION
  Report Type: Spontaneous
  Country: US (occurrence: None)
  Receive Date: 20240524
  Receipt Date: 20240524
  Transmission Date: 20240716
  Serious: No
  Sender: FDA-Public Use
  Company Number: None

PATIENT

DRUGS (1)
  1. HEPARIN [Suspect]
     Active Substance: HEPARIN SODIUM
     Dosage: OTHER STRENGTH : 20,000 UNITS/500 M;?

REACTIONS (3)
  - Product packaging confusion [None]
  - Wrong product stored [None]
  - Product label confusion [None]
